FAERS Safety Report 18227208 (Version 1)
Quarter: 2020Q3

REPORT INFORMATION
  Report Type: Spontaneous
  Country: US (occurrence: US)
  Receive Date: 20200902
  Receipt Date: 20200902
  Transmission Date: 20201103
  Serious: Yes (Death)
  Sender: FDA-Public Use
  Company Number: None

PATIENT
  Age: 78 Year
  Sex: Female

DRUGS (22)
  1. VERZENIO [Suspect]
     Active Substance: ABEMACICLIB
     Route: 048
     Dates: start: 20200623, end: 20200829
  2. CYCLOPHOSPHAMIDE. [Concomitant]
     Active Substance: CYCLOPHOSPHAMIDE
  3. DOCETAXEL. [Concomitant]
     Active Substance: DOCETAXEL
  4. ONDANSETRON [Concomitant]
     Active Substance: ONDANSETRON
  5. INSULIN ASPART FLEXPEN [Concomitant]
     Active Substance: INSULIN ASPART
  6. LEVEMIR FLEX TOUCH PEN [Concomitant]
  7. PROLIA [Concomitant]
     Active Substance: DENOSUMAB
  8. PRAVASTATIN. [Concomitant]
     Active Substance: PRAVASTATIN
  9. CALCIUM W/VIT D3 [Concomitant]
  10. ALOXI [Concomitant]
     Active Substance: PALONOSETRON HYDROCHLORIDE
  11. FASLODEX [Concomitant]
     Active Substance: FULVESTRANT
  12. NEULASTA [Concomitant]
     Active Substance: PEGFILGRASTIM
  13. FERREX [Concomitant]
     Active Substance: FERRIC POLYSACCHARIDE COMPLEX
  14. LISINOPRIL. [Concomitant]
     Active Substance: LISINOPRIL
  15. LIDOCAINE/PRILOCAINE CREAM [Concomitant]
  16. CLOBETASOL PROP 0.05% CREAM [Concomitant]
  17. DEXAMETHASONE. [Concomitant]
     Active Substance: DEXAMETHASONE
  18. SOLIFENACIN [Concomitant]
     Active Substance: SOLIFENACIN
  19. IBUPROFEN. [Concomitant]
     Active Substance: IBUPROFEN
  20. XGEVA [Concomitant]
     Active Substance: DENOSUMAB
  21. OMEPRAZOLE. [Concomitant]
     Active Substance: OMEPRAZOLE
  22. OXYCONTIN CONTROLLED REL [Concomitant]

REACTIONS (1)
  - Death [None]

NARRATIVE: CASE EVENT DATE: 20200829
